FAERS Safety Report 6189516-8 (Version None)
Quarter: 2009Q2

REPORT INFORMATION
  Report Type: 
  Country: None (occurrence: None)
  Receive Date: 20090512
  Receipt Date: 20090501
  Transmission Date: 20091009
  Serious: Yes (Other)
  Sender: FDA-Public Use
  Company Number: GXKR2009JP05375

PATIENT

DRUGS (3)
  1. RIFAMPICIN [Suspect]
     Indication: TUBERCULOSIS
     Dosage: ORAL
     Route: 048
  2. EBUTOL (ETHAMBUTOL) [Suspect]
     Indication: TUBERCULOSIS
     Dosage: ORAL
     Route: 048
  3. ISONIAZID [Suspect]
     Indication: TUBERCULOSIS
     Dosage: ORAL
     Route: 048

REACTIONS (1)
  - INAPPROPRIATE ANTIDIURETIC HORMONE SECRETION [None]
